FAERS Safety Report 4503988-3 (Version None)
Quarter: 2004Q4

REPORT INFORMATION
  Report Type: 
  Country: None (occurrence: None)
  Receive Date: 20041115
  Receipt Date: 20041103
  Transmission Date: 20050328
  Serious: Yes (Death, Other)
  Sender: FDA-Public Use
  Company Number: 2004NV000039

PATIENT

DRUGS (2)
  1. NOVANATAL [Suspect]
     Indication: VITAMIN SUPPLEMENTATION
     Dosage: DF; QD
     Dates: start: 20041029, end: 20041101
  2. RHOGAM [Concomitant]

REACTIONS (2)
  - DRUG EXPOSURE DURING PREGNANCY [None]
  - FOETAL HEART RATE ABNORMAL [None]
